FAERS Safety Report 8302505-X (Version None)
Quarter: 2012Q2

REPORT INFORMATION
  Report Type: 
  Country: None (occurrence: None)
  Receive Date: 20120420
  Receipt Date: 20120409
  Transmission Date: 20120825
  Serious: Yes (Other)
  Sender: FDA-Public Use
  Company Number: JP-BRISTOL-MYERS SQUIBB COMPANY-16510216

PATIENT
  Age: 63 Year
  Sex: Female

DRUGS (1)
  1. CYCLOPHOSPHAMIDE [Suspect]
     Indication: DERMATOMYOSITIS
     Dosage: PULSE THERAPY

REACTIONS (2)
  - CYTOMEGALOVIRUS TEST POSITIVE [None]
  - GASTRIC ULCER HAEMORRHAGE [None]
